FAERS Safety Report 10495587 (Version 1)
Quarter: 2014Q4

REPORT INFORMATION
  Report Type: Spontaneous
  Country: IT (occurrence: IT)
  Receive Date: 20141003
  Receipt Date: 20141003
  Transmission Date: 20150528
  Serious: Yes (Hospitalization)
  Sender: FDA-Public Use
  Company Number: PHHY2014IT124938

PATIENT
  Age: 69 Year
  Sex: Female

DRUGS (5)
  1. PHENOBARBITAL. [Concomitant]
     Active Substance: PHENOBARBITAL
     Indication: EPILEPSY
     Dosage: 100 MG, UNK
     Route: 048
     Dates: start: 19990101, end: 20140724
  2. TEGRETOL [Suspect]
     Active Substance: CARBAMAZEPINE
     Indication: EPILEPSY
     Dosage: 1200 MG, DAILY
     Route: 048
     Dates: start: 19990101
  3. DEPAKENE [Suspect]
     Active Substance: VALPROIC ACID
     Indication: EPILEPSY
     Dosage: 1000 MG, DAILY
     Route: 048
     Dates: start: 19990101
  4. ZONEGRAN [Suspect]
     Active Substance: ZONISAMIDE
     Indication: EPILEPSY
     Dosage: 50 MG, DAILY
     Route: 048
     Dates: start: 20081121
  5. TEGRETOL [Suspect]
     Active Substance: CARBAMAZEPINE
     Dosage: 1000 MG, DAILY
     Route: 065

REACTIONS (5)
  - Bradyphrenia [Recovered/Resolved]
  - Hyponatraemia [Recovered/Resolved]
  - Overdose [Recovered/Resolved]
  - Disorientation [Recovered/Resolved]
  - Ataxia [Recovered/Resolved]

NARRATIVE: CASE EVENT DATE: 20140723
